FAERS Safety Report 4674884-6 (Version None)
Quarter: 2005Q2

REPORT INFORMATION
  Report Type: 
  Country: None (occurrence: None)
  Receive Date: 20050525
  Receipt Date: 20050520
  Transmission Date: 20051028
  Serious: Yes (Death)
  Sender: FDA-Public Use
  Company Number: 05-05-0915

PATIENT
  Age: 80 Year
  Sex: Female

DRUGS (9)
  1. ALBUTEROL SULFATE [Suspect]
     Dosage: 2 PUFFS, 4HR INHALATION
     Route: 055
  2. SPIRIVA [Suspect]
     Indication: CHRONIC OBSTRUCTIVE PULMONARY DISEASE
     Dosage: 18MCG OD INHALATION
     Route: 055
  3. DEXAMETHASONE [Suspect]
     Dosage: 2MG X2 OM ORAL
     Route: 048
  4. LACTULOSE [Suspect]
     Dosage: 10-20ML BD
  5. LANSOPRAZOLE [Suspect]
     Dosage: 15MG X1 OM ORAL
     Route: 048
  6. PARACETAMOL [Suspect]
     Dosage: 500MG X2 QDS ORAL
     Route: 048
  7. QUININE SULPHATE [Suspect]
     Dosage: 300MG X1 ON ORAL
     Route: 048
  8. SENNA [Suspect]
     Dosage: 1-2 ON ORAL
     Route: 048
  9. SERETIDE [Suspect]
     Dosage: 125 2 PUFFS B INHALATION
     Route: 055

REACTIONS (1)
  - NON-HODGKIN'S LYMPHOMA [None]
